FAERS Safety Report 4399913-9 (Version None)
Quarter: 2004Q3

REPORT INFORMATION
  Report Type: 
  Country: None (occurrence: None)
  Receive Date: 20040714
  Receipt Date: 20040706
  Transmission Date: 20050211
  Serious: Yes (Hospitalization)
  Sender: FDA-Public Use
  Company Number: 200412142GDS

PATIENT
  Age: 66 Year
  Sex: Male
  Weight: 70 kg

DRUGS (15)
  1. ASPIRIN [Suspect]
     Indication: ANTICOAGULANT THERAPY
     Dosage: 100 MG, TOTAL DAILY, ORAL
     Route: 048
     Dates: start: 20020424, end: 20020810
  2. DIOVAN [Concomitant]
  3. ACINON [Concomitant]
  4. NITRODERM [Concomitant]
  5. NORVASC [Concomitant]
  6. GLIPIZIDE [Concomitant]
  7. ZANTAC [Concomitant]
  8. DEPAS [Concomitant]
  9. GLYBURIDE [Concomitant]
  10. FERROMIA [Concomitant]
  11. LASIX [Concomitant]
  12. ALDACTONE [Concomitant]
  13. ISOSORBIDE MONONITRATE [Concomitant]
  14. NORPACE [Concomitant]
  15. LEVOFLOXACIN [Concomitant]

REACTIONS (7)
  - BLOOD CREATINE PHOSPHOKINASE MB INCREASED [None]
  - BLOOD CREATININE INCREASED [None]
  - BLUE TOE SYNDROME [None]
  - CORONARY ARTERY OCCLUSION [None]
  - FAT EMBOLISM [None]
  - NECROSIS [None]
  - PAIN IN EXTREMITY [None]
